FAERS Safety Report 9179623 (Version 1)
Quarter: 2012Q4

REPORT INFORMATION
  Report Type: 
  Country: US (occurrence: US)
  Receive Date: 20121029
  Receipt Date: 20121029
  Transmission Date: 20130627
  Serious: Yes (Death)
  Sender: FDA-Public Use
  Company Number: US-GLAXOSMITHKLINE-A0998880A

PATIENT
  Age: 78 Year
  Sex: Female

DRUGS (12)
  1. TYKERB [Suspect]
     Indication: BREAST CANCER
     Dosage: 1500MG Per day
     Route: 048
     Dates: start: 20120326, end: 201210
  2. LIPITOR [Concomitant]
  3. NAMENDA [Concomitant]
  4. PANTOPRAZOLE [Concomitant]
  5. SINGULAIR [Concomitant]
  6. ANASTROZOLE [Concomitant]
  7. AMITIZA [Concomitant]
  8. POTASSIUM [Concomitant]
  9. VESICARE [Concomitant]
  10. WARFARIN [Concomitant]
  11. TRICOR [Concomitant]
  12. SYNTHROID [Concomitant]

REACTIONS (1)
  - Death [Fatal]
